FAERS Safety Report 4381710-1 (Version None)
Quarter: 2004Q2

REPORT INFORMATION
  Report Type: 
  Country: None (occurrence: None)
  Receive Date: 20040603
  Receipt Date: 20030728
  Transmission Date: 20050107
  Serious: Yes (Hospitalization)
  Sender: FDA-Public Use
  Company Number: 200316545US

PATIENT
  Age: 86 Year
  Sex: Female
  Weight: 68.18 kg

DRUGS (6)
  1. HEPARIN FRACTION, SODIUM SALT (LOVENOX) SOLUTION FOR INJECTION [Suspect]
     Indication: DEEP VEIN THROMBOSIS
     Dosage: 40 MG QD
     Dates: start: 20030710, end: 20030714
  2. HEPARIN FRACTION, SODIUM SALT (LOVENOX) SOLUTION FOR INJECTION [Suspect]
     Indication: PROPHYLAXIS
     Dosage: 40 MG QD
     Dates: start: 20030710, end: 20030714
  3. CELEXA [Concomitant]
  4. LISINOPRIL [Concomitant]
  5. LEVOTHYROXINESODIUIM (SYNTHROID) [Concomitant]
  6. ERYTHROPOIETIN (PROCRIT) [Concomitant]

REACTIONS (4)
  - ECCHYMOSIS [None]
  - HAEMATOCRIT DECREASED [None]
  - HAEMATOMA [None]
  - HAEMOGLOBIN DECREASED [None]
